FAERS Safety Report 4446845-3 (Version None)
Quarter: 2004Q3

REPORT INFORMATION
  Report Type: 
  Country: None (occurrence: None)
  Receive Date: 20040908
  Receipt Date: 20040825
  Transmission Date: 20050211
  Serious: Yes (Other)
  Sender: FDA-Public Use
  Company Number: 2004230153DE

PATIENT
  Age: 75 Year
  Sex: Male

DRUGS (5)
  1. BEXTRA [Suspect]
     Indication: LOCALISED OSTEOARTHRITIS
     Dosage: ORAL
     Route: 048
     Dates: start: 20040601, end: 20040101
  2. MARCUMAR [Concomitant]
  3. TAMBOCOR [Concomitant]
  4. DIGITALIS [Concomitant]
  5. ACE-INHIBITOR [Concomitant]

REACTIONS (3)
  - HYPERSENSITIVITY [None]
  - PROTHROMBIN TIME PROLONGED [None]
  - SKIN REACTION [None]
